FAERS Safety Report 8021599-2 (Version None)
Quarter: 2012Q1

REPORT INFORMATION
  Report Type: 
  Country: None (occurrence: None)
  Receive Date: 20120104
  Receipt Date: 20120104
  Transmission Date: 20120608
  Serious: Yes (Life-Threatening, Other)
  Sender: FDA-Public Use
  Company Number: None

PATIENT

DRUGS (3)
  1. GAMASTAN [Suspect]
     Indication: RABIES
     Dosage: 10.2ML
     Route: 030
     Dates: start: 20110829, end: 20110829
  2. GAMASTAN [Suspect]
     Indication: PROPHYLAXIS
     Dosage: 10.2ML
     Route: 030
     Dates: start: 20110829, end: 20110829
  3. GAMASTAN [Concomitant]
     Dosage: 10.2ML
     Route: 030
     Dates: start: 20110829, end: 20110829

REACTIONS (4)
  - MEDICATION ERROR [None]
  - PRODUCT LABEL ISSUE [None]
  - PRODUCT NAME CONFUSION [None]
  - PRODUCT PACKAGING ISSUE [None]
